FAERS Safety Report 9244964 (Version 1)
Quarter: 2013Q2

REPORT INFORMATION
  Report Type: Spontaneous
  Country: US (occurrence: US)
  Receive Date: 20130422
  Receipt Date: 20130422
  Transmission Date: 20140414
  Serious: Yes (Other)
  Sender: FDA-Public Use
  Company Number: US-BAYER-2013-046253

PATIENT
  Sex: Female

DRUGS (2)
  1. MIRENA [Suspect]
     Indication: PAIN
     Dosage: UNK
     Dates: start: 201303
  2. MIRENA [Suspect]
     Indication: GENITAL HAEMORRHAGE

REACTIONS (5)
  - Post procedural haemorrhage [None]
  - Headache [None]
  - Dizziness [None]
  - Weight increased [None]
  - Sluggishness [None]
